FAERS Safety Report 26123263 (Version 1)
Quarter: 2025Q4

REPORT INFORMATION
  Report Type: Spontaneous
  Country: US (occurrence: US)
  Receive Date: 20251204
  Receipt Date: 20251204
  Transmission Date: 20260117
  Serious: No
  Sender: Hugel Aesthetics
  Company Number: US-Hugel Aesthetics-2189876

PATIENT
  Sex: Female

DRUGS (3)
  1. LETYBO [Suspect]
     Active Substance: LETIBOTULINUMTOXINA-WLBG
     Indication: Skin wrinkling
     Dates: start: 20251013, end: 20251013
  2. LETYBO [Suspect]
     Active Substance: LETIBOTULINUMTOXINA-WLBG
     Indication: Off label use
  3. JEUVEAU [Concomitant]
     Active Substance: PRABOTULINUMTOXINA-XVFS
     Dates: start: 2020

REACTIONS (10)
  - Vision blurred [Recovered/Resolved]
  - Injection site pain [Unknown]
  - Headache [Unknown]
  - Asthenia [Unknown]
  - Malaise [Unknown]
  - Muscle twitching [Recovering/Resolving]
  - Tremor [Recovering/Resolving]
  - Balance disorder [Unknown]
  - Vertigo [Unknown]
  - Photosensitivity reaction [Recovered/Resolved]

NARRATIVE: CASE EVENT DATE: 20251013
